FAERS Safety Report 15902062 (Version 3)
Quarter: 2019Q2

REPORT INFORMATION
  Report Type: Spontaneous
  Country: US (occurrence: US)
  Receive Date: 20190201
  Receipt Date: 20190402
  Transmission Date: 20190711
  Serious: Yes (Disabling)
  Sender: FDA-Public Use
  Company Number: US-OTSUKA-2019_002621

PATIENT
  Sex: Male

DRUGS (4)
  1. ABILIFY [Suspect]
     Active Substance: ARIPIPRAZOLE
     Dosage: 15 MG, QD
     Route: 065
     Dates: end: 201608
  2. ABILIFY [Suspect]
     Active Substance: ARIPIPRAZOLE
     Dosage: 10 MG, QD
     Route: 065
  3. ABILIFY [Suspect]
     Active Substance: ARIPIPRAZOLE
     Indication: ANXIETY
     Dosage: 5 MG, QD
     Route: 065
  4. ABILIFY [Suspect]
     Active Substance: ARIPIPRAZOLE
     Indication: MAJOR DEPRESSION
     Dosage: 2 MG, QD
     Route: 065

REACTIONS (17)
  - Social problem [Unknown]
  - Economic problem [Unknown]
  - Product use in unapproved indication [Unknown]
  - Mental impairment [Unknown]
  - Emotional distress [Unknown]
  - Eating disorder [Recovered/Resolved]
  - Impulse-control disorder [Unknown]
  - Anhedonia [Unknown]
  - Gambling disorder [Recovered/Resolved]
  - Physical disability [Unknown]
  - Compulsive shopping [Recovered/Resolved]
  - Injury [Unknown]
  - Sexual dysfunction [Recovered/Resolved]
  - Compulsive sexual behaviour [Recovered/Resolved]
  - Compulsive hoarding [Recovered/Resolved]
  - Obsessive-compulsive disorder [Recovered/Resolved]
  - Loss of employment [Unknown]

NARRATIVE: CASE EVENT DATE: 201606
